FAERS Safety Report 14512749 (Version 6)
Quarter: 2018Q2

REPORT INFORMATION
  Report Type: Spontaneous
  Country: PL (occurrence: PL)
  Receive Date: 20180209
  Receipt Date: 20180523
  Transmission Date: 20180711
  Serious: Yes (Death, Hospitalization, Other)
  Sender: FDA-Public Use
  Company Number: PL-BAUSCH-BL-2018-003530

PATIENT
  Age: 56 Year
  Sex: Female

DRUGS (30)
  1. BORTEZOMIB [Suspect]
     Active Substance: BORTEZOMIB
     Indication: CHEMOTHERAPY
  2. DOXORUBICIN HYDROCHLORIDE. [Suspect]
     Active Substance: DOXORUBICIN HYDROCHLORIDE
     Indication: PLASMA CELL MYELOMA
     Dosage: VD-PACE
     Route: 065
  3. MICAFUNGIN [Suspect]
     Active Substance: MICAFUNGIN
     Dosage: QD
     Route: 065
  4. DOXORUBICIN [Concomitant]
     Active Substance: DOXORUBICIN
     Indication: PLASMA CELL MYELOMA
  5. CISPLATIN. [Concomitant]
     Active Substance: CISPLATIN
     Indication: PLASMA CELL MYELOMA
     Route: 065
  6. BORTEZOMIB [Suspect]
     Active Substance: BORTEZOMIB
     Indication: PLASMA CELL MYELOMA
     Dosage: QCYCLE; UNSPECIFIED, CTD REGIMEN; DOSAGE FORM: UNSPECIFIED, VD-PACE
     Route: 065
  7. CYCLOPHOSPHAMIDE. [Suspect]
     Active Substance: CYCLOPHOSPHAMIDE
     Indication: PLASMA CELL MYELOMA
     Dosage: UNK, QCYCLE; UNSPECIFIED, CTD REGIMEN
     Route: 065
  8. MICAFUNGIN [Suspect]
     Active Substance: MICAFUNGIN
     Indication: CANDIDA INFECTION
     Route: 065
  9. CYCLOPHOSPHAMIDE. [Suspect]
     Active Substance: CYCLOPHOSPHAMIDE
     Indication: PLASMA CELL MYELOMA
  10. MELPHALAN. [Suspect]
     Active Substance: MELPHALAN
     Route: 065
  11. ETOPOSIDE. [Suspect]
     Active Substance: ETOPOSIDE
     Indication: PLASMA CELL MYELOMA
  12. BENDAMUSTINE HYDROCHLORIDE. [Suspect]
     Active Substance: BENDAMUSTINE HYDROCHLORIDE
     Indication: PLASMA CELL MYELOMA
     Dosage: POWDER (EXCEPT DUSTING POWDER), UNK UNK, QCYCLE
     Route: 042
  13. ENDOXAN [Suspect]
     Active Substance: CYCLOPHOSPHAMIDE
     Indication: PLASMA CELL MYELOMA
     Route: 065
  14. CISPLATIN. [Suspect]
     Active Substance: CISPLATIN
     Indication: PLASMA CELL MYELOMA
  15. CISPLATIN. [Suspect]
     Active Substance: CISPLATIN
     Indication: CHEMOTHERAPY
  16. FLUCONAZOLE. [Suspect]
     Active Substance: FLUCONAZOLE
     Indication: PRODUCT USED FOR UNKNOWN INDICATION
     Route: 065
  17. LENALIDOMIDE [Suspect]
     Active Substance: LENALIDOMIDE
     Indication: PLASMA CELL MYELOMA
     Dosage: UNK, QCYCLE; DOSAGE FORM: UNSPECIFIED
     Route: 065
  18. DEXAMETHASONE. [Suspect]
     Active Substance: DEXAMETHASONE
     Indication: PLASMA CELL MYELOMA
     Dosage: VD-PACE; DOSAGE FORM: UNSPECIFIED, CTD REGIMEN
     Route: 065
  19. DEXAMETHASONE. [Suspect]
     Active Substance: DEXAMETHASONE
     Indication: CHEMOTHERAPY
  20. CYCLOPHOSPHAMIDE. [Suspect]
     Active Substance: CYCLOPHOSPHAMIDE
     Indication: CHEMOTHERAPY
  21. THALIDOMIDE [Suspect]
     Active Substance: THALIDOMIDE
     Indication: CHEMOTHERAPY
     Dosage: UNSPECIFIED, CTD REGIMEN
     Route: 065
  22. BORTEZOMIB [Suspect]
     Active Substance: BORTEZOMIB
     Indication: PLASMA CELL MYELOMA
     Dosage: LYOPHILIZED POWDER FOR INJECTABLE SOLUTION, 2 CYCLES
     Route: 065
  23. CISPLATIN. [Suspect]
     Active Substance: CISPLATIN
     Indication: PLASMA CELL MYELOMA
     Dosage: UNK, QCYCLE; UNSPECIFIED, VD-PACE
     Route: 065
  24. MELPHALAN. [Suspect]
     Active Substance: MELPHALAN
     Indication: PLASMA CELL MYELOMA
     Dosage: HIGH DOSE
     Route: 065
  25. CYCLOPHOSPHAMIDE. [Concomitant]
     Active Substance: CYCLOPHOSPHAMIDE
     Indication: PLASMA CELL MYELOMA
  26. ETOPOSIDE. [Suspect]
     Active Substance: ETOPOSIDE
     Indication: PLASMA CELL MYELOMA
     Dosage: QCYCLE; UNSPECIFIED, VD-PACE
     Route: 065
  27. ETOPOSIDE. [Suspect]
     Active Substance: ETOPOSIDE
     Indication: CHEMOTHERAPY
  28. DOXORUBICIN HYDROCHLORIDE. [Suspect]
     Active Substance: DOXORUBICIN HYDROCHLORIDE
     Indication: CHEMOTHERAPY
  29. DOXORUBICIN HYDROCHLORIDE. [Suspect]
     Active Substance: DOXORUBICIN HYDROCHLORIDE
     Indication: PLASMA CELL MYELOMA
  30. ETOPOSIDE. [Concomitant]
     Active Substance: ETOPOSIDE
     Indication: PLASMA CELL MYELOMA

REACTIONS (24)
  - Oral fungal infection [Fatal]
  - Candida infection [Fatal]
  - Enterococcal sepsis [Fatal]
  - Mucosal erosion [Fatal]
  - Pain [Fatal]
  - Herpes zoster [Fatal]
  - Gastrointestinal fungal infection [Fatal]
  - Acute sinusitis [Fatal]
  - Plasma cell myeloma [Fatal]
  - Nasal abscess [Fatal]
  - Pancytopenia [Fatal]
  - Sinus polyp [Fatal]
  - Mucosal inflammation [Fatal]
  - Fungal infection [Fatal]
  - Malignant neoplasm progression [Fatal]
  - Abscess [Fatal]
  - Oral disorder [Fatal]
  - Varicella zoster virus infection [Fatal]
  - Sepsis [Fatal]
  - Disease progression [Fatal]
  - Pneumonia fungal [Fatal]
  - Sinusitis [Fatal]
  - Pulmonary mycosis [Fatal]
  - Plasma cell leukaemia [Fatal]

NARRATIVE: CASE EVENT DATE: 2017
